FAERS Safety Report 15731585 (Version 2)
Quarter: 2018Q4

REPORT INFORMATION
  Report Type: Spontaneous
  Country: US (occurrence: US)
  Receive Date: 20181217
  Receipt Date: 20181219
  Transmission Date: 20190205
  Serious: Yes (Hospitalization, Other)
  Sender: FDA-Public Use
  Company Number: US-PFM-2018-14629

PATIENT
  Age: 73 Year
  Sex: Male

DRUGS (2)
  1. VINORELBINE [Suspect]
     Active Substance: VINORELBINE\VINORELBINE TARTRATE
     Indication: NON-SMALL CELL LUNG CANCER
     Dosage: UNK, CYCLICAL
     Route: 065
  2. GEMCITABINE [Suspect]
     Active Substance: GEMCITABINE\GEMCITABINE HYDROCHLORIDE
     Indication: NON-SMALL CELL LUNG CANCER
     Dosage: UNK UNK, CYCLICAL
     Route: 065

REACTIONS (12)
  - Decubitus ulcer [Recovered/Resolved]
  - Orthostatic hypotension [Recovered/Resolved]
  - Insomnia [Recovered/Resolved]
  - Dyspnoea [Recovered/Resolved]
  - Myalgia [Recovered/Resolved]
  - Arthralgia [Recovered/Resolved]
  - Amnesia [Recovered/Resolved]
  - Adrenal insufficiency [Recovered/Resolved]
  - Sputum increased [Recovered/Resolved]
  - Back pain [Recovered/Resolved]
  - Cough [Recovered/Resolved]
  - Dry mouth [Recovered/Resolved]
